FAERS Safety Report 9832722 (Version 2)
Quarter: 2014Q1

REPORT INFORMATION
  Report Type: Spontaneous
  Country: US (occurrence: US)
  Receive Date: 20140121
  Receipt Date: 20140207
  Transmission Date: 20141002
  Serious: No
  Sender: FDA-Public Use
  Company Number: US-PFIZER INC-2014016250

PATIENT
  Age: 58 Year
  Sex: Female
  Weight: 49.89 kg

DRUGS (2)
  1. LYRICA [Suspect]
     Indication: FIBROMYALGIA
     Dosage: 300 MG, 2X/DAY
     Route: 048
     Dates: start: 200407
  2. LYRICA [Suspect]
     Indication: NEURALGIA
     Dosage: 300 MG, 1X/DAY (AT NIGHT)
     Route: 048

REACTIONS (7)
  - Ligament sprain [Unknown]
  - Vomiting [Unknown]
  - Nausea [Unknown]
  - Body height decreased [Unknown]
  - Spinal pain [Unknown]
  - Neuralgia [Unknown]
  - Osteoporosis [Unknown]
